FAERS Safety Report 5723891-0 (Version None)
Quarter: 2008Q2

REPORT INFORMATION
  Report Type: 
  Country: None (occurrence: None)
  Receive Date: 20080428
  Receipt Date: 20080416
  Transmission Date: 20081010
  Serious: Yes (Other)
  Sender: FDA-Public Use
  Company Number: 2008009712

PATIENT
  Age: 12 Year
  Sex: Male

DRUGS (2)
  1. COOL MINT LISTERINE (MENTHOL, METHYL SALICYLATE, EUCALYPTOL, THYMOL) [Suspect]
     Dosage: 1/2  A TRAVEL SIZE BOTTLE ONCE, ORAL
     Route: 048
     Dates: start: 20080416, end: 20080416
  2. ANTIEPILEPTICS (ANTIEPILEPTICS) [Concomitant]

REACTIONS (2)
  - ACCIDENTAL DRUG INTAKE BY CHILD [None]
  - DISORIENTATION [None]
